FAERS Safety Report 5372429-9 (Version None)
Quarter: 2007Q2

REPORT INFORMATION
  Report Type: 
  Country: None (occurrence: None)
  Receive Date: 20070620
  Receipt Date: 20070419
  Transmission Date: 20071010
  Serious: No
  Sender: FDA-Public Use
  Company Number: 2007RL000175

PATIENT
  Age: 62 Year
  Sex: Male

DRUGS (6)
  1. OMACOR [Suspect]
     Indication: BLOOD TRIGLYCERIDES INCREASED
     Dosage: 1 G; PO
     Route: 048
  2. NEXIUM [Concomitant]
  3. TRICOR [Concomitant]
  4. TOPROL-XL [Concomitant]
  5. AVANDAMET [Concomitant]
  6. ATACAND [Concomitant]

REACTIONS (4)
  - CONDITION AGGRAVATED [None]
  - DIARRHOEA [None]
  - MEDICATION ERROR [None]
  - STOMACH DISCOMFORT [None]
